FAERS Safety Report 6946120-9 (Version None)
Quarter: 2010Q3

REPORT INFORMATION
  Report Type: 
  Country: None (occurrence: None)
  Receive Date: 20100827
  Receipt Date: 20100820
  Transmission Date: 20110219
  Serious: Yes (Hospitalization, Other)
  Sender: FDA-Public Use
  Company Number: CA-ABBOTT-10P-028-0663552-00

PATIENT
  Sex: Female
  Weight: 72.186 kg

DRUGS (9)
  1. HUMIRA [Suspect]
     Indication: PSORIASIS
     Route: 058
     Dates: start: 20070613, end: 20100730
  2. LIPITOR [Concomitant]
     Indication: BLOOD CHOLESTEROL INCREASED
     Route: 048
  3. CLOZAPINE [Concomitant]
     Indication: PANIC ATTACK
     Route: 048
  4. SYNTHROID [Concomitant]
     Indication: HYPOTHYROIDISM
     Dosage: 0.75 MG QD
     Route: 048
  5. CITALOPRAM [Concomitant]
     Indication: DEPRESSION
     Route: 048
  6. CITALOPRAM [Concomitant]
     Indication: STRESS
  7. RANITIDINE [Concomitant]
     Indication: DYSPEPSIA
     Dosage: PRN
     Route: 048
  8. VITAMIN D [Concomitant]
     Indication: VITAMIN SUPPLEMENTATION
     Route: 048
  9. ASPIRIN [Concomitant]
     Indication: PRODUCT USED FOR UNKNOWN INDICATION
     Route: 048

REACTIONS (6)
  - BLOOD ZINC DECREASED [None]
  - GASTROINTESTINAL INJURY [None]
  - HERNIA [None]
  - INFECTION [None]
  - SMALL INTESTINE OPERATION [None]
  - SURGERY [None]
